FAERS Safety Report 19762000 (Version 1)
Quarter: 2021Q3

REPORT INFORMATION
  Report Type: Spontaneous
  Country: US (occurrence: US)
  Receive Date: 20210825
  Receipt Date: 20210825
  Transmission Date: 20211014
  Serious: No
  Sender: FDA-Public Use
  Company Number: None

PATIENT
  Sex: Female

DRUGS (1)
  1. STELARA [Suspect]
     Active Substance: USTEKINUMAB
     Indication: CROHN^S DISEASE
     Dosage: OTHER FREQUENCY:EVERY 6 WEEKS;?
     Route: 058
     Dates: start: 202008

REACTIONS (7)
  - Back pain [None]
  - Malaise [None]
  - Mental disorder [None]
  - Rash [None]
  - Drug ineffective [None]
  - Pain [None]
  - Haemorrhoids [None]
